FAERS Safety Report 18569858 (Version 2)
Quarter: 2020Q4

REPORT INFORMATION
  Report Type: Spontaneous
  Country: US (occurrence: US)
  Receive Date: 20201202
  Receipt Date: 20201231
  Transmission Date: 20210114
  Serious: Yes (Death, Other)
  Sender: FDA-Public Use
  Company Number: US-NOVOPROD-764674

PATIENT
  Age: 56 Year
  Sex: Male

DRUGS (1)
  1. RYBELSUS [Suspect]
     Active Substance: SEMAGLUTIDE
     Indication: DIABETES MELLITUS INADEQUATE CONTROL
     Dosage: 3 MG, QD
     Route: 048
     Dates: start: 20201015, end: 20201028

REACTIONS (2)
  - Acute myocardial infarction [Fatal]
  - Thyroid cancer [Unknown]

NARRATIVE: CASE EVENT DATE: 2020
